FAERS Safety Report 23171190 (Version 1)
Quarter: 2023Q4

REPORT INFORMATION
  Report Type: Report from Study
  Country: US (occurrence: US)
  Receive Date: 20231110
  Receipt Date: 20231110
  Transmission Date: 20240110
  Serious: Yes (Other)
  Sender: FDA-Public Use
  Company Number: US-JNJFOC-20231109405

PATIENT
  Sex: Female

DRUGS (1)
  1. SPRAVATO [Suspect]
     Active Substance: ESKETAMINE
     Indication: Depression
     Dates: start: 20231009

REACTIONS (3)
  - Hallucination, visual [Unknown]
  - Loss of personal independence in daily activities [Unknown]
  - Dissociation [Unknown]

NARRATIVE: CASE EVENT DATE: 20231001
